FAERS Safety Report 24565206 (Version 1)
Quarter: 2024Q4

REPORT INFORMATION
  Report Type: Report from Study
  Country: IN (occurrence: IN)
  Receive Date: 20241030
  Receipt Date: 20241030
  Transmission Date: 20250114
  Serious: Yes (Hospitalization, Other)
  Sender: CIPLA
  Company Number: IN-CIPLA LTD.-2024IN12195

PATIENT

DRUGS (6)
  1. SPIRONOLACTONE\TORSEMIDE [Suspect]
     Active Substance: SPIRONOLACTONE\TORSEMIDE
     Indication: Cardiac disorder
     Dosage: STRENGTH: 10 UNITS UNSPECIFIED, 1 DOSE 1 FREQUENCY UNITS UNSPECIFIED
     Route: 048
     Dates: start: 20241005, end: 20241008
  2. TORSEMIDE [Suspect]
     Active Substance: TORSEMIDE
     Indication: Fluid retention
     Dosage: STRENGTH: 10 UNITS UNSPECIFIED, 1 DOSE 1 FREQUENCY UNITS UNSPECIFIED
     Route: 065
  3. TORSEMIDE [Suspect]
     Active Substance: TORSEMIDE
     Indication: Diuretic therapy
  4. METOPROLOL SUCCINATE [Suspect]
     Active Substance: METOPROLOL SUCCINATE
     Indication: Cardiac disorder
     Dosage: 1 DOSE 1 FREQUENCY (UNITS UNSPECIFIED)
     Route: 048
     Dates: start: 2023, end: 20241008
  5. CLOPIVAS AP [Concomitant]
     Indication: Product used for unknown indication
     Dosage: UNK (STRENGTH: 150 UNITS UNSPECIFIED)
     Route: 065
  6. RAMIPRIL [Concomitant]
     Active Substance: RAMIPRIL
     Indication: Product used for unknown indication
     Dosage: UNK (STRENGTH: 2.5 UNITS UNSPECIFIED)
     Route: 065

REACTIONS (4)
  - Cardiovascular disorder [Not Recovered/Not Resolved]
  - Anxiety [Not Recovered/Not Resolved]
  - Chest pain [Not Recovered/Not Resolved]
  - Asthenia [Not Recovered/Not Resolved]

NARRATIVE: CASE EVENT DATE: 20241001
